FAERS Safety Report 7098472-X (Version None)
Quarter: 2010Q4

REPORT INFORMATION
  Report Type: 
  Country: None (occurrence: None)
  Receive Date: 20101112
  Receipt Date: 20101001
  Transmission Date: 20110411
  Serious: Yes (Other)
  Sender: FDA-Public Use
  Company Number: US-BAYER-201041045GPV

PATIENT
  Age: 47 Year
  Sex: Male

DRUGS (4)
  1. REFLUDAN [Suspect]
     Dates: start: 20090101
  2. HEPARIN [Suspect]
     Dates: start: 20090101
  3. BIVALIRUDIN [Suspect]
     Dates: start: 20090101
  4. INOTROPIC DRUGS (DOBUTAMINE HYDROCHLORIDE) [Concomitant]

REACTIONS (1)
  - CARDIOVASCULAR DISORDER [None]
